FAERS Safety Report 5109032-1 (Version None)
Quarter: 2006Q3

REPORT INFORMATION
  Report Type: 
  Country: None (occurrence: None)
  Receive Date: 20060918
  Receipt Date: 20060907
  Transmission Date: 20061208
  Serious: Yes (Death)
  Sender: FDA-Public Use
  Company Number: US200604002473

PATIENT
  Age: 66 Year
  Sex: Female

DRUGS (1)
  1. SYMBYAX(OLANZAPINE AND FLUOXETINE HYDROCHLORIDE UNKNOWN MANUFACTURER) [Suspect]
     Indication: INSOMNIA
     Dosage: UNK D/F, UNKNOWN; ORAL
     Route: 048
     Dates: start: 20040901, end: 20040901

REACTIONS (3)
  - CHEST INJURY [None]
  - COMPLETED SUICIDE [None]
  - GUN SHOT WOUND [None]
